FAERS Safety Report 19860968 (Version 2)
Quarter: 2022Q1

REPORT INFORMATION
  Report Type: Report from Study
  Country: JP (occurrence: JP)
  Receive Date: 20210920
  Receipt Date: 20220330
  Transmission Date: 20220423
  Serious: Yes (Other)
  Sender: FDA-Public Use
  Company Number: JP-PFIZER INC-202101182912

PATIENT

DRUGS (5)
  1. DOXORUBICIN HYDROCHLORIDE [Suspect]
     Active Substance: DOXORUBICIN HYDROCHLORIDE
     Dosage: 40 MG/M2, CYCLIC (ON DAY 1) (REPEATED EVERY 4 WEEKS)
  2. ETOPOSIDE [Suspect]
     Active Substance: ETOPOSIDE
     Dosage: 100 MG/M2, CYCLIC (ON DAYS 2-4) (REPEATED EVERY 4 WEEKS)
  3. CISPLATIN [Suspect]
     Active Substance: CISPLATIN
     Dosage: 40 MG/M2, CYCLIC (ON DAYS 3 AND 4) (REPEATED EVERY 4 WEEKS)
  4. MITOTANE [Suspect]
     Active Substance: MITOTANE
     Indication: Adrenocortical carcinoma
     Dosage: 1500 MG/DL, CYCLIC (LOW STARTING DOSE)
     Route: 048
  5. MITOTANE [Suspect]
     Active Substance: MITOTANE
     Dosage: 4000 MG/DL, CYCLIC (OR MAXIMUM-TOLERATED DOSE)
     Route: 048

REACTIONS (1)
  - Febrile neutropenia [Unknown]
